FAERS Safety Report 13234446 (Version 1)
Quarter: 2017Q1

REPORT INFORMATION
  Report Type: Not Available
  Country: FR (occurrence: FR)
  Receive Date: 20170215
  Receipt Date: 20170215
  Transmission Date: 20170428
  Serious: Yes (Other)
  Sender: FDA-Public Use
  Company Number: FR-MUNDIPHARMA DS AND PHARMACOVIGILANCE-GBR-2017-0043376

PATIENT
  Age: 33 Year
  Sex: Male

DRUGS (2)
  1. OXYCONTIN [Suspect]
     Active Substance: OXYCODONE HYDROCHLORIDE
     Indication: PRODUCT USED FOR UNKNOWN INDICATION
     Dosage: 60 MG, [TOTAL]
     Route: 042
     Dates: start: 20160905, end: 20160905
  2. STILNOX [Suspect]
     Active Substance: ZOLPIDEM TARTRATE
     Indication: PRODUCT USED FOR UNKNOWN INDICATION
     Dosage: 10 MG, [TOTAL]
     Route: 042
     Dates: start: 20160905, end: 20160905

REACTIONS (5)
  - Drug abuse [Recovered/Resolved]
  - Incorrect route of drug administration [Unknown]
  - Anxiety [Recovered/Resolved]
  - Skin infection [Recovering/Resolving]
  - Pyrexia [Recovering/Resolving]

NARRATIVE: CASE EVENT DATE: 20160905
